FAERS Safety Report 21784201 (Version 1)
Quarter: 2022Q4

REPORT INFORMATION
  Report Type: Spontaneous
  Country: DE (occurrence: DE)
  Receive Date: 20221227
  Receipt Date: 20221227
  Transmission Date: 20230112
  Serious: Yes (Hospitalization)
  Sender: FDA-Public Use
  Company Number: DE-ROCHE-1982514

PATIENT
  Age: 50 Year
  Sex: Female
  Weight: 48 kg

DRUGS (7)
  1. TRASTUZUMAB [Suspect]
     Active Substance: TRASTUZUMAB
     Indication: HER2 positive gastric cancer
     Dosage: 8 MILLIGRAM/KILOGRAM, SOLUTION FOR INFUSION
     Route: 042
     Dates: start: 20170227
  2. CISPLATIN [Suspect]
     Active Substance: CISPLATIN
     Indication: HER2 positive gastric cancer
     Dosage: DOSE PRIOR EVENT:8/AUG/2017 D1 ONCE EVERY 3 WK
     Route: 042
     Dates: start: 20170227
  3. FLUOROURACIL [Suspect]
     Active Substance: FLUOROURACIL
     Indication: HER2 positive gastric cancer
     Dosage: DOSE PRIOR SAE:8/AUG/2017 D1-5 1 EVERY 3 WK
     Route: 042
     Dates: start: 20170320
  4. CAPECITABINE [Suspect]
     Active Substance: CAPECITABINE
     Indication: HER2 positive gastric cancer
     Dosage: DOSE PRIOR SAE:2/MAR/2017 D1-14 1 EVERY 3 WK
     Route: 048
     Dates: start: 20170227
  5. PERTUZUMAB [Suspect]
     Active Substance: PERTUZUMAB
     Indication: HER2 positive gastric cancer
     Dosage: 840 MILLIGRAM,LAST DOSE ON 08/08/2017 1 TOTAL
     Route: 042
     Dates: start: 20170227
  6. LACTULOSE [Concomitant]
     Active Substance: LACTULOSE
     Indication: Constipation
     Dosage: 9.9 GRAM
     Route: 048
  7. METAMIZOLE [Concomitant]
     Active Substance: METAMIZOLE
     Indication: Pain
     Dosage: 500 MILLIGRAM PER MILLILITRE
     Route: 048
     Dates: start: 20170214

REACTIONS (3)
  - Vertigo [Recovered/Resolved]
  - Mucosal inflammation [Recovered/Resolved]
  - Nausea [Recovered/Resolved]

NARRATIVE: CASE EVENT DATE: 20170815
